FAERS Safety Report 6222729-5 (Version None)
Quarter: 2009Q2

REPORT INFORMATION
  Report Type: 
  Country: None (occurrence: None)
  Receive Date: 20090609
  Receipt Date: 20090609
  Transmission Date: 20091009
  Serious: Yes (Other)
  Sender: FDA-Public Use
  Company Number: None

PATIENT
  Age: 45 Year
  Sex: Female
  Weight: 72.5755 kg

DRUGS (2)
  1. TOVIAZ [Suspect]
     Indication: HYPERTONIC BLADDER
     Dosage: 4 MG 1 X DAY PO, 4 MG 2 X DAY PO
     Route: 048
     Dates: start: 20090427, end: 20090529
  2. TOVIAZ [Suspect]
     Indication: HYPERTONIC BLADDER
     Dosage: 4 MG 1 X DAY PO, 4 MG 2 X DAY PO
     Route: 048
     Dates: start: 20090529, end: 20090604

REACTIONS (1)
  - BLOOD GLUCOSE DECREASED [None]
